FAERS Safety Report 21583206 (Version 1)
Quarter: 2022Q4

REPORT INFORMATION
  Report Type: Spontaneous
  Country: US (occurrence: None)
  Receive Date: 20221110
  Receipt Date: 20221110
  Transmission Date: 20230113
  Serious: No
  Sender: FDA-Public Use
  Company Number: None

PATIENT
  Age: 79 Year
  Sex: Male
  Weight: 111 kg

DRUGS (2)
  1. ASPIRIN [Suspect]
     Active Substance: ASPIRIN
     Indication: Surgery
     Dosage: 81 MG EVERY DAY PO
     Route: 048
  2. EDOXABAN [Suspect]
     Active Substance: EDOXABAN
     Indication: Atrial fibrillation
     Dosage: 60 MG EVERY DAY PO?
     Route: 048
     Dates: start: 20210727

REACTIONS (2)
  - Asthenia [None]
  - Haemorrhage [None]

NARRATIVE: CASE EVENT DATE: 20220601
